FAERS Safety Report 23562825 (Version 4)
Quarter: 2024Q3

REPORT INFORMATION
  Report Type: Spontaneous
  Country: US (occurrence: US)
  Receive Date: 20240226
  Receipt Date: 20240702
  Transmission Date: 20241017
  Serious: No
  Sender: SANOFI AVENTIS
  Company Number: US-SA-SAC20240219000353

PATIENT
  Age: 59 Year
  Sex: Female

DRUGS (2)
  1. DUPIXENT [Suspect]
     Active Substance: DUPILUMAB
     Indication: Dermatitis atopic
     Dosage: 600 MG, 1X
     Route: 058
     Dates: start: 20240223, end: 20240223
  2. DUPIXENT [Suspect]
     Active Substance: DUPILUMAB
     Indication: Eczema
     Dosage: 300 MG, QOW
     Route: 058
     Dates: start: 20240308

REACTIONS (9)
  - Pyrexia [Not Recovered/Not Resolved]
  - Lymphadenopathy [Unknown]
  - Eczema [Recovered/Resolved]
  - Erythema [Recovered/Resolved]
  - Formication [Recovered/Resolved]
  - Pruritus [Recovered/Resolved]
  - Skin swelling [Recovered/Resolved]
  - Injection site pain [Not Recovered/Not Resolved]
  - Product dose omission issue [Unknown]

NARRATIVE: CASE EVENT DATE: 20240101
